FAERS Safety Report 4303871-2 (Version None)
Quarter: 2004Q1

REPORT INFORMATION
  Report Type: 
  Country: None (occurrence: None)
  Receive Date: 20040225
  Receipt Date: 20040113
  Transmission Date: 20041129
  Serious: No
  Sender: FDA-Public Use
  Company Number: FR-GLAXOSMITHKLINE-B0319664A

PATIENT
  Age: 57 Year
  Sex: Female
  Weight: 52 kg

DRUGS (5)
  1. VALACYCLOVIR HCL [Suspect]
     Indication: HERPES ZOSTER
     Dosage: 3G PER DAY
     Route: 048
     Dates: start: 20040107, end: 20040110
  2. OESTRADIOL [Concomitant]
     Indication: MENOPAUSE
     Route: 050
     Dates: start: 19940101
  3. ESTIMA [Concomitant]
     Indication: MENOPAUSE
     Route: 048
     Dates: start: 19940101
  4. FORLAX [Concomitant]
     Route: 048
     Dates: start: 20010101
  5. PSYLLIUM [Concomitant]
     Route: 048
     Dates: start: 20010101

REACTIONS (2)
  - ECZEMA [None]
  - PRURITUS [None]
